FAERS Safety Report 14129942 (Version 2)
Quarter: 2018Q1

REPORT INFORMATION
  Report Type: Report from Study
  Country: US (occurrence: US)
  Receive Date: 20171026
  Receipt Date: 20180123
  Transmission Date: 20180508
  Serious: No
  Sender: FDA-Public Use
  Company Number: US-AMGEN-USASL2017135481

PATIENT
  Age: 58 Year
  Sex: Male

DRUGS (1)
  1. REPATHA [Suspect]
     Active Substance: EVOLOCUMAB
     Indication: HYPERCHOLESTEROLAEMIA
     Dosage: 140 MG/ML, Q2WK
     Route: 065
     Dates: start: 20170905

REACTIONS (9)
  - Pain [Recovered/Resolved]
  - Injection site discolouration [Unknown]
  - Injection site macule [Recovered/Resolved]
  - Injection site rash [Recovered/Resolved]
  - Influenza like illness [Recovered/Resolved]
  - Nausea [Recovered/Resolved]
  - Feeding disorder [Recovered/Resolved]
  - Dyspnoea [Recovered/Resolved]
  - Crepitations [Recovered/Resolved]

NARRATIVE: CASE EVENT DATE: 20170905
